FAERS Safety Report 14102312 (Version 2)
Quarter: 2017Q4

REPORT INFORMATION
  Report Type: Spontaneous
  Country: US (occurrence: US)
  Receive Date: 20171018
  Receipt Date: 20171205
  Transmission Date: 20180321
  Serious: No
  Sender: FDA-Public Use
  Company Number: US-PFIZER INC-2017445203

PATIENT
  Age: 57 Year
  Sex: Female
  Weight: 64.86 kg

DRUGS (2)
  1. LYRICA [Suspect]
     Active Substance: PREGABALIN
     Indication: BACK PAIN
  2. LYRICA [Suspect]
     Active Substance: PREGABALIN
     Indication: NEURALGIA
     Dosage: 300 MG, 1X/DAY [2 CAPSULES AT NIGHT]
     Route: 048
     Dates: start: 201708

REACTIONS (8)
  - Personality disorder [Unknown]
  - Malaise [Unknown]
  - Visual impairment [Unknown]
  - Memory impairment [Unknown]
  - Balance disorder [Unknown]
  - Headache [Not Recovered/Not Resolved]
  - Coordination abnormal [Unknown]
  - Weight increased [Recovering/Resolving]

NARRATIVE: CASE EVENT DATE: 201708
